FAERS Safety Report 5031264-1 (Version None)
Quarter: 2006Q2

REPORT INFORMATION
  Report Type: 
  Country: None (occurrence: None)
  Receive Date: 20060619
  Receipt Date: 20060619
  Transmission Date: 20061013
  Serious: Yes (Other)
  Sender: FDA-Public Use
  Company Number: None

PATIENT
  Age: 9 Year
  Sex: Male
  Weight: 15 kg

DRUGS (1)
  1. GADOLINIUM [Suspect]
     Dosage: 15 ML X1 IV BOLUS
     Route: 040

REACTIONS (3)
  - NEPHROGENIC FIBROSING DERMOPATHY [None]
  - PERITONEAL DIALYSIS [None]
  - RENAL FAILURE [None]
